FAERS Safety Report 18153700 (Version 1)
Quarter: 2020Q3

REPORT INFORMATION
  Report Type: Spontaneous
  Country: FR (occurrence: FR)
  Receive Date: 20200816
  Receipt Date: 20200816
  Transmission Date: 20201103
  Serious: Yes (Life-Threatening)
  Sender: FDA-Public Use
  Company Number: NVSC2020FR223321

PATIENT
  Age: 35 Year
  Sex: Male

DRUGS (11)
  1. ENOXAPARIN [Concomitant]
     Active Substance: ENOXAPARIN
     Indication: PRODUCT USED FOR UNKNOWN INDICATION
     Dosage: UNK
     Route: 065
  2. AZITHROMYCIN ANHYDROUS. [Suspect]
     Active Substance: AZITHROMYCIN ANHYDROUS
     Indication: COVID-19
     Dosage: 250 MG (ZITHROMAX 250 MG COATED TABLET)
     Route: 048
     Dates: start: 20200412, end: 20200416
  3. SARILUMAB [Suspect]
     Active Substance: SARILUMAB
     Indication: COVID-19
     Dosage: 400 MG, QD
     Route: 058
     Dates: start: 20200412, end: 20200414
  4. PLAQUENIL [Suspect]
     Active Substance: HYDROXYCHLOROQUINE SULFATE
     Indication: COVID-19
     Dosage: 600 MG, QD
     Route: 042
     Dates: start: 20200412, end: 20200421
  5. SEVOFLURANE. [Concomitant]
     Active Substance: SEVOFLURANE
     Indication: PRODUCT USED FOR UNKNOWN INDICATION
     Dosage: UNK
     Route: 065
  6. RAMIPRIL. [Concomitant]
     Active Substance: RAMIPRIL
     Indication: PRODUCT USED FOR UNKNOWN INDICATION
     Dosage: UNK
     Route: 065
  7. FUROSEMIDE. [Concomitant]
     Active Substance: FUROSEMIDE
     Indication: PRODUCT USED FOR UNKNOWN INDICATION
     Dosage: UNK
     Route: 065
  8. CEFEPIME [Concomitant]
     Active Substance: CEFEPIME HYDROCHLORIDE
     Indication: PRODUCT USED FOR UNKNOWN INDICATION
     Dosage: UNK
     Route: 065
  9. AMLOR [Concomitant]
     Active Substance: AMLODIPINE BESYLATE
     Indication: PRODUCT USED FOR UNKNOWN INDICATION
     Dosage: UNK
     Route: 065
  10. CLOXACILLINE [Concomitant]
     Active Substance: CLOXACILLIN
     Indication: PRODUCT USED FOR UNKNOWN INDICATION
     Dosage: UNK
     Route: 065
  11. TERCIAN [Concomitant]
     Active Substance: CYAMEMAZINE
     Indication: PRODUCT USED FOR UNKNOWN INDICATION
     Dosage: UNK
     Route: 065

REACTIONS (10)
  - Device related sepsis [Recovered/Resolved]
  - Septic shock [Recovered/Resolved]
  - Acute respiratory distress syndrome [Recovered/Resolved]
  - Incorrect route of product administration [Unknown]
  - Enterococcal infection [Recovered/Resolved]
  - Septic shock [Recovered/Resolved]
  - Pneumonia bacterial [Recovered/Resolved]
  - Delftia acidovorans infection [Recovered/Resolved]
  - Cellulitis staphylococcal [Recovered/Resolved]
  - Pseudomonas infection [Recovered/Resolved]

NARRATIVE: CASE EVENT DATE: 20200413
